FAERS Safety Report 5704800-7 (Version None)
Quarter: 2008Q2

REPORT INFORMATION
  Report Type: 
  Country: None (occurrence: None)
  Receive Date: 20080414
  Receipt Date: 20080402
  Transmission Date: 20081010
  Serious: Yes (Hospitalization, Other)
  Sender: FDA-Public Use
  Company Number: US-AMGEN-STX270101

PATIENT
  Sex: Female
  Weight: 72.6 kg

DRUGS (36)
  1. ENBREL [Suspect]
     Indication: RHEUMATOID ARTHRITIS
     Route: 058
     Dates: start: 20030529
  2. REQUIP [Concomitant]
     Route: 048
     Dates: start: 20080116
  3. LYRICA [Concomitant]
     Dates: start: 20061128
  4. MIDODRINE HYDROCHLORIDE [Concomitant]
     Dates: start: 20061128
  5. RENAGEL [Concomitant]
     Route: 048
     Dates: start: 20080116
  6. FOLIC ACID [Concomitant]
  7. BACTRIM [Concomitant]
     Dates: start: 20070813
  8. LIDOCAINE PATCH 5% [Concomitant]
     Dates: start: 20070110
  9. LIDOCAINE PATCH 5% [Concomitant]
     Dates: start: 20080201, end: 20080201
  10. CLIMARA [Concomitant]
  11. METHOTREXATE SODIUM [Concomitant]
  12. DIGOXIN [Concomitant]
     Dates: end: 20070110
  13. PERGOLIDE MESYLATE [Concomitant]
  14. CYTOTEC [Concomitant]
  15. NAPROSYN [Concomitant]
  16. ZANTAC [Concomitant]
  17. ADVAIR HFA [Concomitant]
     Route: 055
  18. FOSAMAX [Concomitant]
  19. CALCIUM/VITAMINS NOS [Concomitant]
  20. CALCIUM ACETATE [Concomitant]
     Route: 048
     Dates: start: 20080116
  21. VENLAFAXINE HCL [Concomitant]
     Dates: start: 20080116
  22. VITAMIN B-12 [Concomitant]
     Dates: start: 20061128
  23. NEURONTIN [Concomitant]
     Dates: end: 20061128
  24. ZOLOFT [Concomitant]
     Dates: end: 20061128
  25. EFFEXOR [Concomitant]
     Dates: start: 20061128
  26. SENOKOT [Concomitant]
     Dates: start: 20070110
  27. ZOFRAN [Concomitant]
     Dates: start: 20070110
  28. DEXAMETHASONE [Concomitant]
     Dates: start: 20070110
  29. FUROSEMIDE [Concomitant]
     Dates: start: 20070202, end: 20070813
  30. FUROSEMIDE [Concomitant]
     Route: 048
     Dates: start: 20070813
  31. CYTOXAN [Concomitant]
     Route: 048
     Dates: start: 20070813
  32. METHADONE HCL [Concomitant]
     Route: 048
     Dates: start: 20070813
  33. METOLAZONE [Concomitant]
     Route: 048
     Dates: start: 20070813
  34. ACYCLOVIR [Concomitant]
     Dates: start: 20070813
  35. TRILEPTAL [Concomitant]
     Route: 048
     Dates: start: 20080116
  36. FAMVIR [Concomitant]

REACTIONS (24)
  - ABDOMINAL PAIN [None]
  - ALOPECIA [None]
  - AMYLOIDOSIS [None]
  - ARTHRITIS [None]
  - BLOOD ALBUMIN DECREASED [None]
  - BRONCHITIS [None]
  - CARDIAC FAILURE CONGESTIVE [None]
  - CONTUSION [None]
  - DIARRHOEA [None]
  - DIASTOLIC DYSFUNCTION [None]
  - DIZZINESS POSTURAL [None]
  - FATIGUE [None]
  - GAMMOPATHY [None]
  - HERPES ZOSTER [None]
  - MALAISE [None]
  - NEPHROTIC SYNDROME [None]
  - ORTHOSTATIC HYPOTENSION [None]
  - PARAESTHESIA [None]
  - RENAL FAILURE CHRONIC [None]
  - RESTLESS LEGS SYNDROME [None]
  - SKIN LESION [None]
  - SYNOVITIS [None]
  - TONGUE DISORDER [None]
  - WEIGHT DECREASED [None]
